FAERS Safety Report 4267128-0 (Version None)
Quarter: 2004Q1

REPORT INFORMATION
  Report Type: 
  Country: None (occurrence: None)
  Receive Date: 20040107
  Receipt Date: 20031013
  Transmission Date: 20041129
  Serious: Yes (Hospitalization, Other)
  Sender: FDA-Public Use
  Company Number: KII-2003-0006600

PATIENT
  Age: 50 Year
  Sex: Male

DRUGS (3)
  1. OXYCONTIN [Suspect]
  2. PREDNISONE [Suspect]
  3. ACETYLSALICYLIC ACID SRT [Suspect]

REACTIONS (9)
  - BLOOD PH INCREASED [None]
  - BLOOD POTASSIUM DECREASED [None]
  - MULTIPLE DRUG OVERDOSE [None]
  - PCO2 DECREASED [None]
  - PNEUMONIA [None]
  - PO2 DECREASED [None]
  - RESPIRATORY DEPRESSION [None]
  - SINUS TACHYCARDIA [None]
  - WHITE BLOOD CELL COUNT INCREASED [None]
